FAERS Safety Report 5723717-5 (Version None)
Quarter: 2008Q2

REPORT INFORMATION
  Report Type: 
  Country: None (occurrence: None)
  Receive Date: 20080429
  Receipt Date: 20080429
  Transmission Date: 20081010
  Serious: No
  Sender: FDA-Public Use
  Company Number: None

PATIENT
  Sex: Male

DRUGS (2)
  1. TRAMADOL HCL [Suspect]
     Indication: PAIN
     Dosage: 50-100MG QID PO
     Route: 048
     Dates: start: 20080422, end: 20080423
  2. TRAMADOL HCL [Suspect]
     Indication: POLYMYALGIA RHEUMATICA
     Dosage: 50-100MG QID PO
     Route: 048
     Dates: start: 20080422, end: 20080423

REACTIONS (3)
  - GOUT [None]
  - INADEQUATE ANALGESIA [None]
  - PHARMACEUTICAL PRODUCT COMPLAINT [None]
